FAERS Safety Report 5052759-0 (Version None)
Quarter: 2006Q3

REPORT INFORMATION
  Report Type: 
  Country: None (occurrence: None)
  Receive Date: 20060717
  Receipt Date: 20060703
  Transmission Date: 20061208
  Serious: Yes (Hospitalization)
  Sender: FDA-Public Use
  Company Number: HK-ROCHE-453789

PATIENT
  Age: 41 Year
  Sex: Male
  Weight: 68 kg

DRUGS (9)
  1. CAPECITABINE [Suspect]
     Dosage: ADMINSTERED ON DAYS 1-14 OF 21 DAY CYCLE.
     Route: 048
     Dates: start: 20060516, end: 20060627
  2. AVASTIN [Suspect]
     Route: 042
     Dates: start: 20060516, end: 20060627
  3. LAMIVUDINE [Concomitant]
  4. SIROLIMUS [Concomitant]
  5. POTASSIUM CHLORIDE [Concomitant]
     Dosage: DRUG REPORTED AS ^POTASSIUM CHLORIDE SR^.
  6. ADEFOVIR DIPIVOXIL [Concomitant]
  7. NIFEDIPINE [Concomitant]
  8. PYRIDOXINE HCL [Concomitant]
     Dates: start: 20060517
  9. METOCLOPRAMIDE HCL [Concomitant]
     Dosage: UP TO THREE TIMES DAILY.
     Dates: start: 20060606

REACTIONS (1)
  - BLOOD CREATININE INCREASED [None]
